FAERS Safety Report 19061993 (Version 2)
Quarter: 2021Q3

REPORT INFORMATION
  Report Type: Spontaneous
  Country: US (occurrence: US)
  Receive Date: 20210325
  Receipt Date: 20210913
  Transmission Date: 20211014
  Serious: Yes (Other)
  Sender: FDA-Public Use
  Company Number: US-GILEAD-2021-0522296

PATIENT
  Age: 39 Year
  Sex: Male
  Weight: 53.52 kg

DRUGS (44)
  1. BREO ELLIPTA [Concomitant]
     Active Substance: FLUTICASONE FUROATE\VILANTEROL TRIFENATATE
  2. CLONIDINE. [Concomitant]
     Active Substance: CLONIDINE
  3. BUDESONIDE. [Concomitant]
     Active Substance: BUDESONIDE
  4. VITAMIN D2 [Concomitant]
     Active Substance: ERGOCALCIFEROL
  5. TRUVADA [Suspect]
     Active Substance: EMTRICITABINE\TENOFOVIR DISOPROXIL FUMARATE
     Indication: HIV INFECTION
     Dosage: UNK
     Route: 048
     Dates: start: 2004
  6. SPIRIVA [Concomitant]
     Active Substance: TIOTROPIUM BROMIDE MONOHYDRATE
  7. LABETALOL [Concomitant]
     Active Substance: LABETALOL\LABETALOL HYDROCHLORIDE
  8. LEVOFLOXACIN. [Concomitant]
     Active Substance: LEVOFLOXACIN
  9. METHYLPREDNISOLONE. [Concomitant]
     Active Substance: METHYLPREDNISOLONE
  10. VENTOLIN [Concomitant]
     Active Substance: ALBUTEROL SULFATE
  11. VIREAD [Suspect]
     Active Substance: TENOFOVIR DISOPROXIL FUMARATE
     Indication: HIV INFECTION
     Dosage: UNK
     Route: 065
     Dates: start: 20041014
  12. PREZCOBIX [Concomitant]
     Active Substance: COBICISTAT\DARUNAVIR ETHANOLATE
  13. REYATAZ [Concomitant]
     Active Substance: ATAZANAVIR SULFATE
  14. SYMBICORT [Concomitant]
     Active Substance: BUDESONIDE\FORMOTEROL FUMARATE DIHYDRATE
  15. PREDNISONE. [Concomitant]
     Active Substance: PREDNISONE
  16. VALACYCLOVIR [Concomitant]
     Active Substance: VALACYCLOVIR HYDROCHLORIDE
  17. MEGACE [Concomitant]
     Active Substance: MEGESTROL ACETATE
  18. PROMETHAZINE [Concomitant]
     Active Substance: PROMETHAZINE HYDROCHLORIDE
  19. AMOX [AMOXICILLIN] [Concomitant]
     Active Substance: AMOXICILLIN
  20. BOTOX [Concomitant]
     Active Substance: ONABOTULINUMTOXINA
  21. DEXAMETHASONE. [Concomitant]
     Active Substance: DEXAMETHASONE
  22. DOXYCYCLINE. [Concomitant]
     Active Substance: DOXYCYCLINE
  23. LEVALBUTEROL [LEVOSALBUTAMOL] [Concomitant]
     Active Substance: LEVALBUTEROL
  24. TRUVADA [Suspect]
     Active Substance: EMTRICITABINE\TENOFOVIR DISOPROXIL FUMARATE
     Dosage: UNK
     Route: 065
     Dates: start: 2007, end: 201702
  25. ERYTHROMYCIN. [Concomitant]
     Active Substance: ERYTHROMYCIN
  26. NYSTATIN. [Concomitant]
     Active Substance: NYSTATIN
  27. PROVENTIL [Concomitant]
     Active Substance: ALBUTEROL
  28. SULFAMETHOXAZOLE [Concomitant]
     Active Substance: SULFAMETHOXAZOLE
  29. SEROSTIM [Concomitant]
     Active Substance: SOMATROPIN
  30. DILTIAZEM. [Concomitant]
     Active Substance: DILTIAZEM
  31. CIPROFLOXACIN. [Concomitant]
     Active Substance: CIPROFLOXACIN
  32. DRYSOL [Concomitant]
     Active Substance: ALUMINUM CHLORIDE
  33. PRAVASTATIN. [Concomitant]
     Active Substance: PRAVASTATIN
  34. TRIAMCINOLONE [Concomitant]
     Active Substance: TRIAMCINOLONE
  35. NORVIR [Concomitant]
     Active Substance: RITONAVIR
  36. SYMTUZA [Concomitant]
     Active Substance: COBICISTAT\DARUNAVIR\EMTRICITABINE\TENOFOVIR ALAFENAMIDE
  37. PROAIR HFA [Concomitant]
     Active Substance: ALBUTEROL SULFATE
  38. ANDROGEL [Concomitant]
     Active Substance: TESTOSTERONE
  39. GLYCOPYRROLATE. [Concomitant]
     Active Substance: GLYCOPYRROLATE
  40. SMZ (CO) [Concomitant]
  41. DESCOVY [Concomitant]
     Active Substance: EMTRICITABINE\TENOFOVIR ALAFENAMIDE FUMARATE
  42. EMTRIVA [Concomitant]
     Active Substance: EMTRICITABINE
  43. ADVAIR HFA [Concomitant]
     Active Substance: FLUTICASONE PROPIONATE\SALMETEROL XINAFOATE
  44. ALBUTEROL [SALBUTAMOL] [Concomitant]
     Active Substance: ALBUTEROL

REACTIONS (12)
  - Bone density decreased [Unknown]
  - Depression [Not Recovered/Not Resolved]
  - Pain [Not Recovered/Not Resolved]
  - Anxiety [Not Recovered/Not Resolved]
  - Emotional distress [Unknown]
  - Spinal compression fracture [Not Recovered/Not Resolved]
  - Foot fracture [Recovered/Resolved]
  - Spinal fracture [Unknown]
  - Femur fracture [Recovered/Resolved]
  - Osteoarthritis [Unknown]
  - Osteoporosis [Not Recovered/Not Resolved]
  - Anhedonia [Not Recovered/Not Resolved]

NARRATIVE: CASE EVENT DATE: 2005
